FAERS Safety Report 16232891 (Version 1)
Quarter: 2019Q2

REPORT INFORMATION
  Report Type: Spontaneous
  Country: US (occurrence: US)
  Receive Date: 20190424
  Receipt Date: 20190424
  Transmission Date: 20190711
  Serious: No
  Sender: FDA-Public Use
  Company Number: US-SA-2019SA109030

PATIENT
  Age: 62 Year
  Sex: Male

DRUGS (2)
  1. AMBIEN CR [Suspect]
     Active Substance: ZOLPIDEM TARTRATE
     Indication: INSOMNIA
     Dosage: 12.5 MG, HS
     Dates: start: 20190415
  2. AMBIEN CR [Suspect]
     Active Substance: ZOLPIDEM TARTRATE
     Dosage: EVEN A TOTAL OF 3 OF THE TABLETS TAKEN LAST NIGHT DID NOT

REACTIONS (1)
  - Drug ineffective [Unknown]
